FAERS Safety Report 8384563 (Version 3)
Quarter: 2014Q3

REPORT INFORMATION
  Report Type: Spontaneous
  Country: DE (occurrence: DE)
  Receive Date: 20120202
  Receipt Date: 20140729
  Transmission Date: 20150326
  Serious: Yes (Life-Threatening, Hospitalization)
  Sender: FDA-Public Use
  Company Number: DE-RANBAXY-2012RR-52164

PATIENT
  Age: 54 Year
  Sex: Male
  Weight: 99 kg

DRUGS (7)
  1. ADALAT 10 KAPSELN [Concomitant]
     Indication: CORONARY ARTERY DISEASE
     Dosage: UNK
     Route: 048
  2. CAPTOPRIL. [Concomitant]
     Active Substance: CAPTOPRIL
     Indication: PRODUCT USED FOR UNKNOWN INDICATION
     Dosage: 50 MG, UNK
     Route: 048
  3. NOVODIGAL TABLETTEN [Concomitant]
     Indication: ATRIAL FIBRILLATION
     Dosage: UNK
     Route: 048
  4. SOTALOL. [Concomitant]
     Active Substance: SOTALOL
     Indication: ATRIAL FIBRILLATION
     Dosage: UNK
     Route: 048
  5. METFORMIN [Suspect]
     Active Substance: METFORMIN HYDROCHLORIDE
     Indication: DIABETES MELLITUS
     Dosage: UNK
     Route: 048
     Dates: start: 199811
  6. ISOKET 5 SUGLINGUALTABLETTEN [Concomitant]
     Indication: CORONARY ARTERY DISEASE
     Dosage: 1 DF, UNK
     Route: 048
  7. FUROSEMIDE. [Concomitant]
     Active Substance: FUROSEMIDE
     Indication: PRODUCT USED FOR UNKNOWN INDICATION
     Dosage: UNK
     Route: 048

REACTIONS (7)
  - Lactic acidosis [Recovered/Resolved]
  - Renal failure [Recovered/Resolved]
  - Blood creatinine increased [Recovered/Resolved]
  - Bradycardia [Recovered/Resolved]
  - Arrhythmia [Recovered/Resolved]
  - Hyperkalaemia [Recovered/Resolved]
  - Lung disorder [Recovered/Resolved]

NARRATIVE: CASE EVENT DATE: 19990320
